FAERS Safety Report 8911114 (Version 1)
Quarter: 2012Q4

REPORT INFORMATION
  Report Type: 
  Country: BR (occurrence: BR)
  Receive Date: 20121116
  Receipt Date: 20121116
  Transmission Date: 20130627
  Serious: Yes (Hospitalization)
  Sender: FDA-Public Use
  Company Number: BR-BRISTOL-MYERS SQUIBB COMPANY-17111188

PATIENT
  Age: 49 Year
  Sex: Male
  Weight: 89 kg

DRUGS (2)
  1. ONGLYZA TABS 5 MG [Suspect]
     Indication: DIABETES MELLITUS
     Dosage: about 1 year and 3 months ago,1 tab
     Route: 048
  2. GLIMEPIRIDE+METFORMIN HCL [Suspect]
     Dosage: Meritor

REACTIONS (1)
  - Cerebrovascular accident [Unknown]
